FAERS Safety Report 21132986 (Version 1)
Quarter: 2022Q3

REPORT INFORMATION
  Report Type: Spontaneous
  Country: BE (occurrence: BE)
  Receive Date: 20220726
  Receipt Date: 20220726
  Transmission Date: 20221027
  Serious: Yes (Hospitalization)
  Sender: FDA-Public Use
  Company Number: BE-NOVARTISPH-NVSC2022BE168808

PATIENT
  Age: 45 Year
  Sex: Male

DRUGS (1)
  1. PIPERACILLIN SODIUM\TAZOBACTAM SODIUM [Suspect]
     Active Substance: PIPERACILLIN SODIUM\TAZOBACTAM SODIUM
     Indication: Candida infection
     Dosage: UNK
     Route: 050

REACTIONS (3)
  - Bacterial infection [Recovered/Resolved]
  - Enterococcal infection [Recovered/Resolved]
  - Drug ineffective [Unknown]
